FAERS Safety Report 11881418 (Version 1)
Quarter: 2015Q4

REPORT INFORMATION
  Report Type: Spontaneous
  Country: FR (occurrence: FR)
  Receive Date: 20151231
  Receipt Date: 20151231
  Transmission Date: 20160305
  Serious: Yes (Hospitalization)
  Sender: FDA-Public Use
  Company Number: FR-PFIZER INC-2015474396

PATIENT
  Age: 55 Year
  Sex: Male

DRUGS (15)
  1. PREVISCAN [Interacting]
     Active Substance: FLUINDIONE
     Indication: AORTIC VALVE REPLACEMENT
     Dosage: 20 MG, UNK
     Route: 048
     Dates: start: 2005, end: 20150906
  2. CONTRAMAL [Interacting]
     Active Substance: TRAMADOL HYDROCHLORIDE
     Indication: PAIN
     Dosage: 50 MG, UNK (1 TO 2 TABLETS X 4 TO 6/DAILY)
     Route: 048
     Dates: start: 20150906, end: 20150906
  3. TAMSULOSIN [Concomitant]
     Active Substance: TAMSULOSIN
     Indication: PROSTATIC ADENOMA
     Dosage: UNK
  4. BISOPROLOL [Concomitant]
     Active Substance: BISOPROLOL
     Indication: ARRHYTHMIA
     Dosage: UNK
  5. PROFENID [Interacting]
     Active Substance: KETOPROFEN
     Indication: PAIN
     Dosage: UNK
     Route: 065
     Dates: start: 20150906, end: 20150906
  6. ATORVASTATIN [Concomitant]
     Active Substance: ATORVASTATIN
     Indication: HYPERCHOLESTEROLAEMIA
     Dosage: UNK
  7. ESOMEPRAZOLE [Concomitant]
     Active Substance: ESOMEPRAZOLE
     Indication: GASTRIC DISORDER
     Dosage: UNK
  8. LEXOMIL [Concomitant]
     Active Substance: BROMAZEPAM
     Dosage: UNK
  9. CORDARONE [Suspect]
     Active Substance: AMIODARONE HYDROCHLORIDE
     Indication: ARRHYTHMIA
     Dosage: UNK
     Route: 048
  10. DUTASTERIDE. [Concomitant]
     Active Substance: DUTASTERIDE
     Indication: PROSTATIC ADENOMA
     Dosage: UNK
  11. ACUPAN [Interacting]
     Active Substance: NEFOPAM HYDROCHLORIDE
     Indication: PAIN
     Dosage: 50 MG, UNK
     Route: 065
     Dates: start: 20150907, end: 20150907
  12. FLECAINIDE [Concomitant]
     Active Substance: FLECAINIDE
     Indication: ARRHYTHMIA
     Dosage: UNK
  13. COLESTYRAMINE [Concomitant]
     Active Substance: CHOLESTYRAMINE
     Indication: HYPERCHOLESTEROLAEMIA
     Dosage: UNK
  14. MOVICOL [Concomitant]
     Active Substance: POLYETHYLENE GLYCOL 3350\POTASSIUM CHLORIDE\SODIUM BICARBONATE\SODIUM CHLORIDE
     Indication: GASTRIC DISORDER
     Dosage: UNK
  15. PARACETAMOL [Interacting]
     Active Substance: ACETAMINOPHEN
     Indication: PAIN
     Dosage: 1 DF, UNK (1 UNIT)
     Route: 048
     Dates: start: 20150906

REACTIONS (3)
  - International normalised ratio increased [Recovered/Resolved]
  - Spontaneous haematoma [Recovering/Resolving]
  - Drug interaction [Unknown]

NARRATIVE: CASE EVENT DATE: 20150907
